FAERS Safety Report 5407051-9 (Version None)
Quarter: 2007Q3

REPORT INFORMATION
  Report Type: 
  Country: None (occurrence: None)
  Receive Date: 20070703
  Receipt Date: 20070719
  Transmission Date: 20080115
  Serious: Yes (Other)
  Sender: FDA-Public Use
  Company Number: 6035948

PATIENT
  Age: 58 Year
  Sex: Male

DRUGS (4)
  1. GLIMEPIRIDE [Suspect]
     Indication: DRUG USE FOR UNKNOWN INDICATION
     Dosage: 180 MG (2 MG,90 IN 1 ONCE), ORAL
     Route: 048
  2. CARVEDILOL [Suspect]
     Indication: DRUG USE FOR UNKNOWN INDICATION
     Dosage: 1125 MG (12,5 MG,90 IN 1 ONCE), ORAL
     Route: 048
  3. LORAZEPAM [Suspect]
     Indication: DRUG USE FOR UNKNOWN INDICATION
     Dosage: 50 MG (1 MG,50 IN 1 , ORAL
     Route: 048
  4. NOVODIGAL 0,2 (0,2 MG) (DIGOXIN) [Suspect]
     Indication: DRUG USE FOR UNKNOWN INDICATION
     Dosage: 20 MG (0,2 MG,100 IN 1 ONCE), ORAL

REACTIONS (6)
  - BRADYCARDIA [None]
  - EXTRASYSTOLES [None]
  - GASTROINTESTINAL HYPOMOTILITY [None]
  - OVERDOSE [None]
  - SOMNOLENCE [None]
  - SUICIDE ATTEMPT [None]
